FAERS Safety Report 9331228 (Version 2)
Quarter: 2013Q2

REPORT INFORMATION
  Report Type: Report from Study
  Country: CA (occurrence: CA)
  Receive Date: 20130605
  Receipt Date: 20130620
  Transmission Date: 20140414
  Serious: Yes (Other)
  Sender: FDA-Public Use
  Company Number: CA-ABBOTT-13X-028-1098286-00

PATIENT
  Age: 55 Year
  Sex: Female
  Weight: 63.11 kg

DRUGS (7)
  1. MAVIK [Suspect]
     Indication: HYPERTENSION
     Dates: start: 20130422
  2. MAVIK [Suspect]
  3. MAVIK [Suspect]
  4. LUVOX [Suspect]
     Indication: PRODUCT USED FOR UNKNOWN INDICATION
  5. VALIUM [Concomitant]
     Indication: PRODUCT USED FOR UNKNOWN INDICATION
     Dates: start: 20130423, end: 20130605
  6. RESTORIL [Concomitant]
     Indication: PRODUCT USED FOR UNKNOWN INDICATION
     Dosage: 30 MG AT BEDTIME
     Dates: start: 20130220
  7. PREVACID [Concomitant]
     Dates: start: 20100601

REACTIONS (6)
  - Hemiparesis [Recovered/Resolved]
  - Hypoaesthesia [Recovered/Resolved]
  - Chest pain [Recovered/Resolved]
  - Blood pressure decreased [Unknown]
  - Headache [Recovered/Resolved]
  - Anxiety [Unknown]
